FAERS Safety Report 5531154-1 (Version None)
Quarter: 2007Q4

REPORT INFORMATION
  Report Type: 
  Country: None (occurrence: None)
  Receive Date: 20071130
  Receipt Date: 20071121
  Transmission Date: 20080405
  Serious: Yes (Other)
  Sender: FDA-Public Use
  Company Number: BR-PFIZER INC-2007098866

PATIENT
  Sex: Female

DRUGS (3)
  1. SILDENAFIL (PAH) [Suspect]
     Indication: CARDIAC DISORDER
     Dosage: DAILY DOSE:150MG
     Route: 048
  2. DIOVAN [Concomitant]
  3. OTHER RESPIRATORY SYSTEM PRODUCTS [Concomitant]

REACTIONS (3)
  - CARDIAC DISORDER [None]
  - FATIGUE [None]
  - LUNG DISORDER [None]
